FAERS Safety Report 9868173 (Version 1)
Quarter: 2014Q1

REPORT INFORMATION
  Report Type: Spontaneous
  Country: US (occurrence: US)
  Receive Date: 20140204
  Receipt Date: 20140204
  Transmission Date: 20141002
  Serious: No
  Sender: FDA-Public Use
  Company Number: US-009507513-1402USA000290

PATIENT
  Age: 77 Year
  Sex: Female

DRUGS (2)
  1. AZASITE [Suspect]
     Indication: DRY EYE
     Dosage: 1 DROP IN EACH EYE TWICE A DAY FOR 6 WEEKS
     Route: 047
     Dates: start: 20140111
  2. AZASITE [Suspect]
     Indication: BACTERIAL INFECTION

REACTIONS (3)
  - Vision blurred [Unknown]
  - Incorrect drug administration duration [Unknown]
  - Drug dose omission [Unknown]
